FAERS Safety Report 9308246 (Version 1)
Quarter: 2013Q2

REPORT INFORMATION
  Report Type: Report from Study
  Country: CA (occurrence: CA)
  Receive Date: 20130524
  Receipt Date: 20130524
  Transmission Date: 20140414
  Serious: Yes (Hospitalization)
  Sender: FDA-Public Use
  Company Number: CA-JNJFOC-20130514792

PATIENT
  Age: 56 Year
  Sex: Male
  Weight: 70 kg

DRUGS (2)
  1. REMICADE [Suspect]
     Indication: CROHN^S DISEASE
     Dosage: FIRST TREATMENT
     Route: 042
     Dates: start: 20130429
  2. REMICADE [Suspect]
     Indication: CROHN^S DISEASE
     Dosage: INDUCTION DOSE NUMBER 2 WAS GIVEN ON 17-MAY-2013
     Route: 042
     Dates: start: 20130517

REACTIONS (3)
  - Nasal abscess [Recovered/Resolved]
  - Nasal polyps [Recovered/Resolved]
  - Dehydration [Recovered/Resolved]
